FAERS Safety Report 25562178 (Version 1)
Quarter: 2025Q3

REPORT INFORMATION
  Report Type: Report from Study
  Country: US (occurrence: US)
  Receive Date: 20250716
  Receipt Date: 20250716
  Transmission Date: 20251020
  Serious: No
  Sender: ACADIA PHARMACEUTICALS
  Company Number: US-ACADIA PHARMACEUTICALS INC.-ACA-2025-PIM-008219

PATIENT
  Sex: Male

DRUGS (31)
  1. NUPLAZID [Suspect]
     Active Substance: PIMAVANSERIN TARTRATE
     Indication: Parkinson^s disease psychosis
     Dosage: 34 MILLIGRAM, QD
     Route: 048
     Dates: start: 20210813
  2. DESVENLAFAXINE [Suspect]
     Active Substance: DESVENLAFAXINE
     Indication: Product used for unknown indication
     Route: 065
  3. GABAPENTIN [Suspect]
     Active Substance: GABAPENTIN
     Indication: Product used for unknown indication
     Route: 065
  4. MAGNESIUM [Concomitant]
     Active Substance: MAGNESIUM
  5. AMLODIPINE [Concomitant]
     Active Substance: AMLODIPINE BESYLATE
  6. CETIRIZINE [Concomitant]
     Active Substance: CETIRIZINE HYDROCHLORIDE
  7. CILOSTAZOL [Concomitant]
     Active Substance: CILOSTAZOL
  8. CLONAZEPAM [Concomitant]
     Active Substance: CLONAZEPAM
  9. CRESTOR [Concomitant]
     Active Substance: ROSUVASTATIN CALCIUM
  10. FLONASE [Concomitant]
     Active Substance: FLUTICASONE PROPIONATE
  11. INCRUSE ELLIPTA [Concomitant]
     Active Substance: UMECLIDINIUM BROMIDE
  12. NEXIUM I.V. [Concomitant]
     Active Substance: ESOMEPRAZOLE SODIUM
  13. RAMIPRIL [Concomitant]
     Active Substance: RAMIPRIL
  14. RYTARY [Concomitant]
     Active Substance: CARBIDOPA\LEVODOPA
  15. VENTOLIN [Concomitant]
     Active Substance: ALBUTEROL SULFATE
  16. LEVALBUTEROL [Concomitant]
     Active Substance: LEVALBUTEROL
  17. TYRVAYA [Concomitant]
     Active Substance: VARENICLINE TARTRATE
  18. HYDROXYZINE [Concomitant]
     Active Substance: HYDROXYZINE HYDROCHLORIDE
  19. OLANZAPINE [Concomitant]
     Active Substance: OLANZAPINE
  20. DOXYCYCLINE [Concomitant]
     Active Substance: DOXYCYCLINE
  21. KETOCONAZOLE [Concomitant]
     Active Substance: KETOCONAZOLE
  22. BETAMETHASONE [Concomitant]
     Active Substance: BETAMETHASONE
  23. LEVOMEFOLIC ACID [Concomitant]
     Active Substance: LEVOMEFOLIC ACID
  24. ALBUTEROL [Concomitant]
     Active Substance: ALBUTEROL
  25. IPRATROPIUM [Concomitant]
     Active Substance: IPRATROPIUM
  26. MIDODRINE [Concomitant]
     Active Substance: MIDODRINE
  27. POLYETHYLENE GLYCOLS [Concomitant]
     Active Substance: POLYETHYLENE GLYCOLS
  28. CLOPIDOGREL [Concomitant]
     Active Substance: CLOPIDOGREL BISULFATE
  29. TAMSULOSIN [Concomitant]
     Active Substance: TAMSULOSIN
  30. ARIPIPRAZOLE [Concomitant]
     Active Substance: ARIPIPRAZOLE
  31. DONEPEZIL [Concomitant]
     Active Substance: DONEPEZIL

REACTIONS (2)
  - Hypotension [Not Recovered/Not Resolved]
  - Somnolence [Not Recovered/Not Resolved]
